FAERS Safety Report 8341513-X (Version None)
Quarter: 2012Q2

REPORT INFORMATION
  Report Type: 
  Country: None (occurrence: None)
  Receive Date: 20120507
  Receipt Date: 20100204
  Transmission Date: 20120825
  Serious: No
  Sender: FDA-Public Use
  Company Number: US-TEVA-2010000672

PATIENT
  Sex: Male

DRUGS (3)
  1. TREANDA [Suspect]
     Indication: CHRONIC LYMPHOCYTIC LEUKAEMIA
     Route: 042
     Dates: start: 20091001
  2. TREANDA [Suspect]
     Route: 042
     Dates: start: 20100101
  3. INH [Concomitant]
     Indication: TUBERCULOSIS

REACTIONS (5)
  - DECUBITUS ULCER [None]
  - THROMBOCYTOPENIA [None]
  - ANAEMIA HAEMOLYTIC AUTOIMMUNE [None]
  - HAPTOGLOBIN DECREASED [None]
  - NEUTROPENIA [None]
